FAERS Safety Report 26174991 (Version 1)
Quarter: 2025Q4

REPORT INFORMATION
  Report Type: Spontaneous
  Country: EU (occurrence: EU)
  Receive Date: 20251218
  Receipt Date: 20251218
  Transmission Date: 20260117
  Serious: Yes (Hospitalization)
  Sender: PFIZER
  Company Number: None

PATIENT
  Age: 70 Year
  Sex: Female

DRUGS (11)
  1. PIROXICAM [Suspect]
     Active Substance: PIROXICAM
     Indication: Sciatica
     Dosage: 1 DF
     Route: 048
     Dates: start: 202507, end: 20250801
  2. KETOPROFEN [Suspect]
     Active Substance: KETOPROFEN
     Indication: Sciatica
     Dosage: 1 DF
     Route: 048
     Dates: start: 202507, end: 20250801
  3. PREDNISONE [Suspect]
     Active Substance: PREDNISONE
     Indication: Sciatica
     Dosage: 20 MG, 1X/DAY
     Route: 048
     Dates: start: 20250627, end: 20250801
  4. LYRICA [Concomitant]
     Active Substance: PREGABALIN
     Indication: Sciatica
     Dosage: 150 MG, 2X/DAY (EVERY 12 HOURS)
     Route: 048
  5. AMLODIPINE BESYLATE [Concomitant]
     Active Substance: AMLODIPINE BESYLATE
     Indication: Hypertension
     Dosage: 10 MG, 1X/DAY
     Route: 048
  6. CANDESARTAN CILEXETIL [Concomitant]
     Active Substance: CANDESARTAN CILEXETIL
     Indication: Hypertension
     Dosage: 16 MG, 1X/DAY
     Route: 048
  7. HYDROCHLOROTHIAZIDE [Concomitant]
     Active Substance: HYDROCHLOROTHIAZIDE
     Indication: Hypertension
     Dosage: 12.5 MG, 1X/DAY
     Route: 048
  8. MORPHINE SULFATE [Concomitant]
     Active Substance: MORPHINE SULFATE
     Indication: Sciatica
     Dosage: 10 MG
     Route: 048
     Dates: start: 20250729
  9. ARIXTRA [Concomitant]
     Active Substance: FONDAPARINUX SODIUM
     Indication: Pulmonary embolism
     Dosage: 1 MG, 1X/DAY
     Route: 058
  10. MONTELUKAST SODIUM [Concomitant]
     Active Substance: MONTELUKAST SODIUM
     Indication: Hypersensitivity
     Dosage: 10 MG, 1X/DAY
     Route: 048
  11. ATORVASTATIN [Concomitant]
     Active Substance: ATORVASTATIN
     Indication: Dyslipidaemia
     Dosage: 20 MG, 1X/DAY
     Route: 048

REACTIONS (1)
  - Pneumonia aspiration [Recovered/Resolved]

NARRATIVE: CASE EVENT DATE: 20250801
